FAERS Safety Report 15144468 (Version 1)
Quarter: 2018Q3

REPORT INFORMATION
  Report Type: Spontaneous
  Country: US (occurrence: US)
  Receive Date: 20180713
  Receipt Date: 20180713
  Transmission Date: 20181010
  Serious: No
  Sender: FDA-Public Use
  Company Number: US-NOVOPROD-603384

PATIENT
  Age: 61 Year
  Sex: Female
  Weight: 61.24 kg

DRUGS (2)
  1. FIASP [Suspect]
     Active Substance: INSULIN ASPART
     Indication: DIABETES MELLITUS
     Dosage: APPROXIMATELY 30 UNITS PER DAY DIVIDED BETWEEN BASAL AND BOLUS
     Route: 058
     Dates: start: 20180516
  2. FIASP [Suspect]
     Active Substance: INSULIN ASPART
     Dosage: 25 TO 75% MORE
     Route: 058
     Dates: start: 2018, end: 201806

REACTIONS (5)
  - Dawn phenomenon [Recovered/Resolved]
  - Wrong technique in product usage process [Unknown]
  - Drug ineffective [Unknown]
  - Product storage error [Unknown]
  - Blood glucose increased [Recovered/Resolved]

NARRATIVE: CASE EVENT DATE: 2018
